FAERS Safety Report 8789126 (Version 1)
Quarter: 2012Q4

REPORT INFORMATION
  Report Type: Spontaneous
  Country: US (occurrence: None)
  Receive Date: 20120910
  Receipt Date: 20120910
  Transmission Date: 20130627
  Serious: No
  Sender: FDA-Public Use
  Company Number: None

PATIENT
  Age: 66 Year
  Sex: Female
  Weight: 74.84 kg

DRUGS (2)
  1. SYNTHROID [Suspect]
     Indication: TSH
     Dosage: 25 mcg (1) Day Purchased at Wal-Mart
     Dates: start: 20120808
  2. SYNTHROID [Suspect]
     Indication: HASHIMOTO^S DISEASE
     Dosage: 25 mcg (1) Day Purchased at Wal-Mart
     Dates: start: 20120808

REACTIONS (2)
  - Dysphagia [None]
  - Dyspnoea [None]
